FAERS Safety Report 14742040 (Version 1)
Quarter: 2018Q2

REPORT INFORMATION
  Report Type: Spontaneous
  Country: US (occurrence: US)
  Receive Date: 20180410
  Receipt Date: 20180410
  Transmission Date: 20180711
  Serious: Yes (Hospitalization)
  Sender: FDA-Public Use
  Company Number: US-PFIZER INC-2018144349

PATIENT
  Sex: Female
  Weight: 127 kg

DRUGS (2)
  1. GABAPENTIN. [Suspect]
     Active Substance: GABAPENTIN
     Dosage: 600 MG, 2X/DAY
     Route: 048
     Dates: end: 2017
  2. GABAPENTIN. [Suspect]
     Active Substance: GABAPENTIN
     Indication: FIBROMYALGIA
     Dosage: 300 MG, 1X/DAY
     Route: 048

REACTIONS (4)
  - Drug ineffective for unapproved indication [Unknown]
  - Fibromyalgia [Unknown]
  - Autoimmune disorder [Not Recovered/Not Resolved]
  - Condition aggravated [Unknown]

NARRATIVE: CASE EVENT DATE: 201511
